FAERS Safety Report 16113016 (Version 1)
Quarter: 2019Q1

REPORT INFORMATION
  Report Type: Spontaneous
  Country: FR (occurrence: FR)
  Receive Date: 20190325
  Receipt Date: 20190325
  Transmission Date: 20190418
  Serious: Yes (Other)
  Sender: FDA-Public Use
  Company Number: FR-SA-2019SA077773

PATIENT
  Age: 85 Year
  Sex: Male
  Weight: 80 kg

DRUGS (10)
  1. RIFADINE [Suspect]
     Active Substance: RIFAMPIN
     Indication: SPONDYLITIS
     Dosage: 1200 MG QD
     Route: 048
     Dates: start: 20190131, end: 20190204
  2. CRESTOR [Concomitant]
     Active Substance: ROSUVASTATIN CALCIUM
     Dosage: 5 MG QD
     Route: 048
     Dates: end: 20190204
  3. STAGID [Concomitant]
     Active Substance: METFORMIN PAMOATE
     Dosage: 2100 MG QD
     Route: 048
  4. PREVISCAN [FLUINDIONE] [Concomitant]
     Active Substance: FLUINDIONE
  5. FUCIDINE [FUSIDATE SODIUM] [Suspect]
     Active Substance: FUSIDATE SODIUM
     Indication: SPONDYLITIS
     Dosage: 1500 MG QD
     Route: 048
     Dates: start: 20190131, end: 20190204
  6. JANUVIA [Concomitant]
     Active Substance: SITAGLIPTIN PHOSPHATE
     Dosage: 100 MG QD
     Route: 048
  7. ACEBUTOLOL HYDROCHLORIDE. [Concomitant]
     Active Substance: ACEBUTOLOL HYDROCHLORIDE
     Dosage: 200 MG QD
     Route: 048
  8. PERINDOPRIL [Concomitant]
     Active Substance: PERINDOPRIL
     Dosage: 2 MG QD
     Route: 048
  9. NOVONORM [Concomitant]
     Active Substance: REPAGLINIDE
     Dosage: 6 MG QD
     Route: 048
  10. HEMIGOXINE NATIVELLE [Concomitant]
     Active Substance: DIGOXIN
     Route: 048

REACTIONS (2)
  - Hyperbilirubinaemia [Recovering/Resolving]
  - Anaemia [Recovering/Resolving]

NARRATIVE: CASE EVENT DATE: 20190204
